FAERS Safety Report 4930105-8 (Version None)
Quarter: 2006Q1

REPORT INFORMATION
  Report Type: 
  Country: None (occurrence: None)
  Receive Date: 20060302
  Receipt Date: 20060220
  Transmission Date: 20060701
  Serious: Yes (Other)
  Sender: FDA-Public Use
  Company Number: 2006PK00408

PATIENT
  Age: 18519 Day
  Sex: Female
  Weight: 54 kg

DRUGS (3)
  1. ZOLADEX [Suspect]
     Indication: BREAST CANCER
     Route: 058
     Dates: start: 20050401
  2. TAMOXIFEN CITRATE [Suspect]
     Indication: BREAST CANCER
     Route: 048
     Dates: start: 20050424
  3. ZOMETA [Suspect]
     Indication: BREAST CANCER
     Route: 042
     Dates: start: 20050424

REACTIONS (1)
  - HEPATIC STEATOSIS [None]
